FAERS Safety Report 7893826-3 (Version None)
Quarter: 2011Q4

REPORT INFORMATION
  Report Type: 
  Country: None (occurrence: None)
  Receive Date: 20111104
  Receipt Date: 20111027
  Transmission Date: 20120403
  Serious: Yes (Death)
  Sender: FDA-Public Use
  Company Number: US-MYLANLABS-2009S1011463

PATIENT
  Age: 39 Year
  Sex: Male
  Weight: 157.85 kg

DRUGS (9)
  1. ARTHROTEC [Concomitant]
     Route: 048
  2. METHYLPREDNISOLONE [Concomitant]
  3. OXYCODONE HYDROCHLORIDE [Concomitant]
     Indication: PAIN
     Dosage: FOUR TIMES PER DAY AS NEEDED
     Route: 048
  4. CYTOMEL [Concomitant]
     Route: 048
  5. AMBIEN CR [Concomitant]
     Route: 048
  6. FENTANYL-100 [Suspect]
     Dosage: CHANGES PATCHES EVERY 3 DAYS
     Route: 062
     Dates: end: 20070614
  7. DIAZEPAM [Concomitant]
     Route: 048
  8. FENTANYL-100 [Suspect]
     Indication: PAIN
     Dosage: CHANGES PATCHES Q3D
     Route: 062
     Dates: start: 20050826, end: 20070614
  9. PROVIGIL [Concomitant]
     Dosage: 200 MG TABLET
     Route: 048

REACTIONS (4)
  - DRUG ABUSE [None]
  - ALCOHOLIC LIVER DISEASE [None]
  - TOXICITY TO VARIOUS AGENTS [None]
  - OVERDOSE [None]
